FAERS Safety Report 6056998-1 (Version None)
Quarter: 2009Q1

REPORT INFORMATION
  Report Type: 
  Country: None (occurrence: None)
  Receive Date: 20090129
  Receipt Date: 20090120
  Transmission Date: 20090719
  Serious: Yes (Hospitalization, Other)
  Sender: FDA-Public Use
  Company Number: DE-ABBOTT-08P-062-0437520-00

PATIENT
  Sex: Male
  Weight: 69 kg

DRUGS (7)
  1. HUMIRA [Suspect]
     Indication: ANKYLOSING SPONDYLITIS
     Route: 058
     Dates: start: 20080701, end: 20081101
  2. ETORICOXIB [Concomitant]
     Indication: ANKYLOSING SPONDYLITIS
     Dates: start: 20070701
  3. SULFASALAZINE [Concomitant]
     Indication: ANKYLOSING SPONDYLITIS
  4. CONCOR PLUS [Concomitant]
     Indication: HYPERTENSION
     Route: 048
  5. LUMIGAN [Concomitant]
     Indication: GLAUCOMA
     Route: 065
  6. NOVAMINSULFAT [Concomitant]
     Indication: PAIN
     Dates: start: 20081101
  7. INDOMETHACIN [Concomitant]
     Indication: PAIN
     Route: 048
     Dates: start: 20081101

REACTIONS (3)
  - METASTASES TO BONE [None]
  - SEMINOMA [None]
  - TESTIS CANCER [None]
